FAERS Safety Report 5100836-8 (Version None)
Quarter: 2006Q3

REPORT INFORMATION
  Report Type: 
  Country: None (occurrence: None)
  Receive Date: 20060911
  Receipt Date: 20060831
  Transmission Date: 20061208
  Serious: Yes (Hospitalization)
  Sender: FDA-Public Use
  Company Number: US-JNJFOC-20060900315

PATIENT
  Sex: Male

DRUGS (10)
  1. REMICADE [Suspect]
     Route: 042
  2. REMICADE [Suspect]
     Indication: RHEUMATOID ARTHRITIS
     Route: 042
  3. FOLIC ACID [Concomitant]
  4. HYDROXYCHLOROQUINE SULFATE [Concomitant]
  5. METHOTREXATE [Concomitant]
  6. MULTI-VITAMIN [Concomitant]
  7. ZANTAC [Concomitant]
  8. ACTONEL [Concomitant]
  9. ROLAIDS [Concomitant]
  10. CALCIUM PLUS D [Concomitant]

REACTIONS (1)
  - CHOLECYSTECTOMY [None]
